FAERS Safety Report 14539147 (Version 1)
Quarter: 2018Q1

REPORT INFORMATION
  Report Type: Spontaneous
  Country: US (occurrence: US)
  Receive Date: 20180214
  Receipt Date: 20180214
  Transmission Date: 20180509
  Serious: Yes (Hospitalization, Disabling)
  Sender: FDA-Public Use
  Company Number: None

PATIENT
  Age: 50 Year
  Sex: Male
  Weight: 90 kg

DRUGS (15)
  1. NORCO [Concomitant]
     Active Substance: ACETAMINOPHEN\HYDROCODONE BITARTRATE
  2. VITAMIN C [Concomitant]
     Active Substance: ASCORBIC ACID
  3. VITAMIN B [Concomitant]
     Active Substance: VITAMIN B
  4. VITAMIN D [Concomitant]
     Active Substance: CHOLECALCIFEROL
  5. COQ10 [Concomitant]
     Active Substance: UBIDECARENONE
  6. SUMATRIPTAN SUCCINATE. [Suspect]
     Active Substance: SUMATRIPTAN SUCCINATE
     Indication: HEADACHE
     Dosage: ?          QUANTITY:9 TABLET(S);?
     Route: 048
  7. MAGNESIUM [Concomitant]
     Active Substance: MAGNESIUM
  8. ARGININE [Concomitant]
     Active Substance: ARGININE
  9. MALE ENHANCEMENT PRODUCT [Concomitant]
  10. ZINC. [Concomitant]
     Active Substance: ZINC
  11. TURMERIC [Concomitant]
     Active Substance: HERBALS\TURMERIC
  12. IODINE. [Concomitant]
     Active Substance: IODINE
  13. FOOD GRADE H2O2 3% [Concomitant]
  14. WHEY PROTEINE MIX [Concomitant]
  15. CARNOSINE [Concomitant]
     Active Substance: CARNOSINE

REACTIONS (4)
  - Blood pressure increased [None]
  - Chest pain [None]
  - Throat tightness [None]
  - Chest discomfort [None]

NARRATIVE: CASE EVENT DATE: 20180203
